FAERS Safety Report 14436132 (Version 1)
Quarter: 2018Q1

REPORT INFORMATION
  Report Type: Spontaneous
  Country: US (occurrence: US)
  Receive Date: 20180124
  Receipt Date: 20180124
  Transmission Date: 20180509
  Serious: Yes (Death)
  Sender: FDA-Public Use
  Company Number: None

PATIENT
  Age: 70 Year
  Sex: Male
  Weight: 80 kg

DRUGS (1)
  1. RIVAROXIBAN [Suspect]
     Active Substance: RIVAROXABAN
     Route: 048

REACTIONS (4)
  - Vomiting [None]
  - Depressed level of consciousness [None]
  - Dysarthria [None]
  - Lethargy [None]

NARRATIVE: CASE EVENT DATE: 20180110
